FAERS Safety Report 9664848 (Version 1)
Quarter: 2013Q4

REPORT INFORMATION
  Report Type: Spontaneous
  Country: FR (occurrence: None)
  Receive Date: 20131031
  Receipt Date: 20131031
  Transmission Date: 20140711
  Serious: Yes (Other)
  Sender: FDA-Public Use
  Company Number: ACO_39104_2013

PATIENT
  Age: 64 Year
  Sex: Female
  Weight: 63 kg

DRUGS (4)
  1. FAMPYRA (DALFAMPRIDINE) TABLET, 10MG [Suspect]
     Indication: MULTIPLE SCLEROSIS
     Dates: start: 20130610
  2. DANTRIUM (DANTROLENE SODIUM) [Concomitant]
  3. TRILEPTAL (OXCARBAZEPINE) [Concomitant]
  4. BETAFERON (INTERFERON BETA-1B) [Concomitant]

REACTIONS (1)
  - Acute myocardial infarction [None]
